FAERS Safety Report 24215494 (Version 1)
Quarter: 2024Q3

REPORT INFORMATION
  Report Type: Spontaneous
  Country: CN (occurrence: CN)
  Receive Date: 20240816
  Receipt Date: 20240816
  Transmission Date: 20241017
  Serious: Yes (Hospitalization)
  Sender: MERCK
  Company Number: CN-009507513-2408CHN004343

PATIENT
  Age: 55 Year
  Sex: Female

DRUGS (4)
  1. IMIPENEM AND CILASTATIN [Suspect]
     Active Substance: CILASTATIN SODIUM\IMIPENEM
     Indication: Anti-infective therapy
     Dosage: UNK
     Dates: start: 20220708
  2. CEFOPERAZONE [Suspect]
     Active Substance: CEFOPERAZONE
     Indication: Anti-infective therapy
     Dosage: UNK
     Dates: start: 20220708
  3. CYCLOPHOSPHAMIDE [Concomitant]
     Active Substance: CYCLOPHOSPHAMIDE
     Indication: Invasive ductal breast carcinoma
     Dosage: UNK, CYCLICAL
     Dates: start: 20220629, end: 20220629
  4. DOCETAXEL [Concomitant]
     Active Substance: DOCETAXEL\DOCETAXEL ANHYDROUS
     Indication: Invasive ductal breast carcinoma
     Dosage: UNK, CYCLICAL
     Dates: start: 20220629, end: 20220629

REACTIONS (1)
  - Drug ineffective [Unknown]

NARRATIVE: CASE EVENT DATE: 20220701
